FAERS Safety Report 7647984-6 (Version None)
Quarter: 2011Q3

REPORT INFORMATION
  Report Type: 
  Country: None (occurrence: None)
  Receive Date: 20110801
  Receipt Date: 20110622
  Transmission Date: 20111222
  Serious: No
  Sender: FDA-Public Use
  Company Number: US-ABBOTT-11P-163-0734355-00

PATIENT
  Sex: Male
  Weight: 68.1 kg

DRUGS (10)
  1. CREON [Suspect]
     Indication: INTESTINAL RESECTION
     Dosage: 2-3 TABLETS PRIOR TO MEAL
     Dates: start: 20101201
  2. MULTI-VITAMIN [Concomitant]
     Indication: PRODUCT USED FOR UNKNOWN INDICATION
     Route: 048
  3. SOMATULINE DEPOT [Suspect]
     Indication: NEUROENDOCRINE CARCINOMA
     Route: 058
     Dates: start: 20110126
  4. CREON [Suspect]
     Indication: NEUROENDOCRINE CARCINOMA
  5. COLOSTYROMINE [Concomitant]
     Indication: PRODUCT USED FOR UNKNOWN INDICATION
     Dosage: 1 SCOOP MIXED WITH BEVERAGE AS NEEDED
     Route: 048
  6. ASCORBIC ACID [Concomitant]
     Indication: PRODUCT USED FOR UNKNOWN INDICATION
     Route: 048
  7. LOVAZA [Concomitant]
     Indication: PRODUCT USED FOR UNKNOWN INDICATION
     Route: 048
  8. SOMATULINE DEPOT [Suspect]
     Indication: METASTASES TO LIVER
  9. LOPERAMIDE HCL [Concomitant]
     Indication: PRODUCT USED FOR UNKNOWN INDICATION
     Dosage: 500MG W/MEALS + AS NEEDED FOR DIARRHEA
  10. CREON [Suspect]
     Indication: METASTASES TO LIVER

REACTIONS (4)
  - PANCREATIC INSUFFICIENCY [None]
  - DIARRHOEA [None]
  - WEIGHT DECREASED [None]
  - FLATULENCE [None]
